FAERS Safety Report 12981453 (Version 1)
Quarter: 2016Q4

REPORT INFORMATION
  Report Type: Spontaneous
  Country: GB (occurrence: GB)
  Receive Date: 20161129
  Receipt Date: 20161129
  Transmission Date: 20170207
  Serious: Yes (Hospitalization)
  Sender: FDA-Public Use
  Company Number: GB-ACCORD-045832

PATIENT
  Age: 93 Year
  Sex: Female
  Weight: 47 kg

DRUGS (7)
  1. INDAPAMIDE/INDAPAMIDE HEMIHYDRATE [Suspect]
     Active Substance: INDAPAMIDE
     Indication: BLOOD PRESSURE INCREASED
     Route: 048
     Dates: start: 20161013, end: 20161104
  2. BISOPROLOL [Concomitant]
     Active Substance: BISOPROLOL
  3. CALCICHEW D3 [Concomitant]
     Active Substance: CALCIUM\CHOLECALCIFEROL
  4. RISEDRONIC ACID [Concomitant]
     Active Substance: RISEDRONIC ACID
  5. QUINIDINE [Concomitant]
     Active Substance: QUINIDINE
  6. SIMVASTATIN. [Concomitant]
     Active Substance: SIMVASTATIN
  7. LISINOPRIL. [Suspect]
     Active Substance: LISINOPRIL
     Indication: BLOOD PRESSURE INCREASED
     Route: 048

REACTIONS (5)
  - Confusional state [None]
  - Hyponatraemia [Recovering/Resolving]
  - Malaise [None]
  - Dehydration [None]
  - Hypokalaemia [Unknown]

NARRATIVE: CASE EVENT DATE: 20161103
